FAERS Safety Report 6199591-2 (Version None)
Quarter: 2009Q2

REPORT INFORMATION
  Report Type: 
  Country: None (occurrence: None)
  Receive Date: 20090522
  Receipt Date: 20090515
  Transmission Date: 20091009
  Serious: Yes (Hospitalization)
  Sender: FDA-Public Use
  Company Number: B0575166A

PATIENT
  Sex: Male

DRUGS (11)
  1. DILATREND [Suspect]
     Indication: DRUG USE FOR UNKNOWN INDICATION
     Dosage: 6.25MG PER DAY
     Route: 048
     Dates: start: 20090311
  2. ENALAPRIL MALEATE [Suspect]
     Indication: ESSENTIAL HYPERTENSION
     Dosage: 20MG PER DAY
     Route: 048
  3. NORVASC [Suspect]
     Indication: ESSENTIAL HYPERTENSION
     Dosage: 5MG PER DAY
     Route: 048
  4. ALDACTONE [Concomitant]
     Dates: start: 20090308
  5. LIQUAEMIN INJ [Concomitant]
  6. SIMVASTATIN [Concomitant]
  7. PLAVIX [Concomitant]
  8. ASPIRIN [Concomitant]
  9. NEXIUM [Concomitant]
  10. DOSPIR [Concomitant]
  11. NITRODERM [Concomitant]

REACTIONS (5)
  - ACUTE PULMONARY OEDEMA [None]
  - DYSPNOEA [None]
  - HYPOTENSION [None]
  - PYREXIA [None]
  - SYSTEMIC INFLAMMATORY RESPONSE SYNDROME [None]
